FAERS Safety Report 8113168-0 (Version None)
Quarter: 2012Q1

REPORT INFORMATION
  Report Type: 
  Country: None (occurrence: None)
  Receive Date: 20120203
  Receipt Date: 20120126
  Transmission Date: 20120608
  Serious: Yes (Other)
  Sender: FDA-Public Use
  Company Number: PL-EISAI INC-E2020-10268-SPO-PL

PATIENT
  Age: 62 Year
  Sex: Female

DRUGS (7)
  1. ASPIRIN [Concomitant]
     Dates: start: 20080101, end: 20080801
  2. DONEPEZIL HCL [Suspect]
     Route: 048
     Dates: start: 20070101, end: 20080801
  3. ASCORBIC ACID [Concomitant]
     Dates: start: 20080801
  4. DONEPEZIL HCL [Suspect]
     Route: 048
     Dates: start: 20070101, end: 20070101
  5. DONEPEZIL HCL [Suspect]
     Route: 048
     Dates: start: 20080101
  6. ACETAMINOPHEN [Concomitant]
     Dates: start: 20080101
  7. ASPIRIN [Concomitant]
     Dosage: 1,000 MG
     Dates: start: 20080801

REACTIONS (6)
  - DECREASED APPETITE [None]
  - ABDOMINAL PAIN UPPER [None]
  - HEADACHE [None]
  - INFECTION [None]
  - DRUG WITHDRAWAL SYNDROME [None]
  - DELIRIUM [None]
